FAERS Safety Report 9550810 (Version 1)
Quarter: 2013Q3

REPORT INFORMATION
  Report Type: Spontaneous
  Country: US (occurrence: US)
  Receive Date: 20130924
  Receipt Date: 20130924
  Transmission Date: 20140515
  Serious: No
  Sender: FDA-Public Use
  Company Number: US-SANOFI-AVENTIS-2013SA053236

PATIENT
  Age: 60 Year
  Sex: Female

DRUGS (15)
  1. AUBAGIO [Suspect]
     Indication: MULTIPLE SCLEROSIS
     Route: 048
     Dates: start: 201302
  2. CYMBALTA [Concomitant]
  3. LIPITOR [Concomitant]
  4. GABAPENTIN [Concomitant]
  5. WELLBUTRIN [Concomitant]
  6. VALTREX [Concomitant]
  7. VITAMIN E [Concomitant]
  8. NEXIUM [Concomitant]
  9. ALPRAZOLAM [Concomitant]
  10. VITAMIN D [Concomitant]
  11. VITAMIN C [Concomitant]
  12. ECHINACEA [Concomitant]
  13. POTASSIUM CHLORIDE [Concomitant]
  14. TIZANIDINE [Concomitant]
  15. ALL OTHER THERAPEUTIC PRODUCTS [Concomitant]

REACTIONS (5)
  - Feeling hot [Unknown]
  - Hyperhidrosis [Not Recovered/Not Resolved]
  - Night sweats [Unknown]
  - Alopecia [Not Recovered/Not Resolved]
  - Diarrhoea [Recovered/Resolved]
